FAERS Safety Report 6597015-4 (Version None)
Quarter: 2010Q1

REPORT INFORMATION
  Report Type: 
  Country: None (occurrence: None)
  Receive Date: 20100223
  Receipt Date: 20100218
  Transmission Date: 20100710
  Serious: Yes (Hospitalization)
  Sender: FDA-Public Use
  Company Number: A0845213A

PATIENT
  Age: 65 Year
  Sex: Female

DRUGS (9)
  1. ADVAIR DISKUS 100/50 [Suspect]
     Indication: ASTHMA
     Route: 055
     Dates: start: 20080101
  2. VERAMYST [Suspect]
     Dates: start: 20080101
  3. BLEACH [Suspect]
  4. THYROID TAB [Concomitant]
  5. SPIRIVA [Concomitant]
  6. PROAIR HFA [Concomitant]
  7. UNSPECIFIED MEDICATION [Concomitant]
  8. NEXIUM [Concomitant]
  9. ALLEGRA [Concomitant]

REACTIONS (3)
  - EXPOSURE TO TOXIC AGENT [None]
  - PNEUMONIA [None]
  - PNEUMONITIS CHEMICAL [None]
